FAERS Safety Report 16655214 (Version 5)
Quarter: 2020Q1

REPORT INFORMATION
  Report Type: Spontaneous
  Country: CA (occurrence: CA)
  Receive Date: 20190801
  Receipt Date: 20200319
  Transmission Date: 20200409
  Serious: Yes (Other)
  Sender: FDA-Public Use
  Company Number: CA-ROCHE-2363090

PATIENT
  Age: 50 Year
  Sex: Female

DRUGS (14)
  1. XOLAIR [Suspect]
     Active Substance: OMALIZUMAB
     Route: 058
     Dates: start: 20190215
  2. AVAMYS [Concomitant]
     Active Substance: FLUTICASONE FUROATE
     Indication: PRODUCT USED FOR UNKNOWN INDICATION
     Dosage: 1 DF, QD
     Route: 045
  3. BENADRYL [Concomitant]
     Active Substance: DIPHENHYDRAMINE HYDROCHLORIDE
     Indication: PRODUCT USED FOR UNKNOWN INDICATION
     Dosage: PRN
     Route: 048
  4. XOLAIR [Suspect]
     Active Substance: OMALIZUMAB
     Indication: ASTHMA
     Route: 058
     Dates: start: 20181121
  5. XOLAIR [Suspect]
     Active Substance: OMALIZUMAB
     Route: 058
     Dates: start: 20190705
  6. LUPRON [Suspect]
     Active Substance: LEUPROLIDE ACETATE
     Indication: PRODUCT USED FOR UNKNOWN INDICATION
     Dosage: UNK (FOR 6 MONTHS)
     Route: 065
  7. VENTOLIN [Concomitant]
     Active Substance: ALBUTEROL SULFATE
     Indication: PRODUCT USED FOR UNKNOWN INDICATION
     Dosage: UNK UNK, PRN (5 TIMES A DAY)
     Route: 055
  8. CLARITIN [Concomitant]
     Active Substance: LORATADINE
     Indication: PRODUCT USED FOR UNKNOWN INDICATION
     Dosage: 1 DF, QD
     Route: 048
  9. PULMICORT TURBUHALER [Concomitant]
     Active Substance: BUDESONIDE
     Indication: SINUS DISORDER
     Dosage: , BID
     Route: 045
  10. BREO ELLIPTA [Concomitant]
     Active Substance: FLUTICASONE FUROATE\VILANTEROL TRIFENATATE
     Indication: PRODUCT USED FOR UNKNOWN INDICATION
     Dosage: UNK UNK, QD
     Route: 055
  11. XOLAIR [Suspect]
     Active Substance: OMALIZUMAB
     Route: 058
     Dates: start: 20190607
  12. ATROVENT [Concomitant]
     Active Substance: IPRATROPIUM BROMIDE
     Indication: PRODUCT USED FOR UNKNOWN INDICATION
     Dosage: 2 DF, BID
     Route: 055
  13. CLARITHROMYCIN. [Concomitant]
     Active Substance: CLARITHROMYCIN
     Indication: PRODUCT USED FOR UNKNOWN INDICATION
     Route: 048
  14. SINGULAIR [Concomitant]
     Active Substance: MONTELUKAST SODIUM
     Indication: PRODUCT USED FOR UNKNOWN INDICATION
     Dosage: 1 DF, QD
     Route: 048

REACTIONS (19)
  - Headache [Unknown]
  - Pharyngeal inflammation [Not Recovered/Not Resolved]
  - Nasal inflammation [Not Recovered/Not Resolved]
  - Contusion [Unknown]
  - Nasal congestion [Recovered/Resolved]
  - Nasal discharge discolouration [Recovered/Resolved]
  - Hypersensitivity [Unknown]
  - Dyspnoea [Recovering/Resolving]
  - Head discomfort [Unknown]
  - Humidity intolerance [Unknown]
  - Increased upper airway secretion [Not Recovered/Not Resolved]
  - Pneumonia [Unknown]
  - Eye allergy [Unknown]
  - Inflammation [Unknown]
  - Uterine leiomyoma [Unknown]
  - Blood parathyroid hormone decreased [Unknown]
  - Concomitant disease aggravated [Unknown]
  - Haemorrhage [Unknown]
  - Seasonal allergy [Unknown]

NARRATIVE: CASE EVENT DATE: 2019
